FAERS Safety Report 9432409 (Version 1)
Quarter: 2013Q3

REPORT INFORMATION
  Report Type: Spontaneous
  Country: ES (occurrence: ES)
  Receive Date: 20130729
  Receipt Date: 20130729
  Transmission Date: 20140515
  Serious: Yes (Death, Other)
  Sender: FDA-Public Use
  Company Number: FK201302723

PATIENT
  Age: 76 Year
  Sex: Female

DRUGS (10)
  1. ACYCLOVIR SODIUM [Suspect]
     Indication: ULCER
  2. VANCOMYCIN [Suspect]
     Indication: ULCER
  3. PANTOPRAZOLE [Suspect]
     Indication: PRODUCT USED FOR UNKNOWN INDICATION
  4. AMIKACIN (AMIKACIN) [Suspect]
     Indication: ULCER
  5. TRAMADOL (TRAMADOL) [Concomitant]
  6. RITUXIMAB (RITUXIMAB) [Concomitant]
  7. CYCLOPHOSPHAMIDE (CYCLOPHOSPHAMIDE) [Concomitant]
  8. DOXORUBICIN (DOXORUBICIN) (DOXORUBICIN) [Concomitant]
  9. VINCRISTINE (VINCRISTINE) (UNKNOWN) [Concomitant]
  10. PREDNISONE (PREDNISONE) [Concomitant]

REACTIONS (10)
  - Hypomagnesaemia [None]
  - Pain [None]
  - Non-Hodgkin^s lymphoma [None]
  - Febrile neutropenia [None]
  - Platelet count decreased [None]
  - Grand mal convulsion [None]
  - Tremor [None]
  - Irritability [None]
  - Muscular weakness [None]
  - Malignant neoplasm progression [None]
